FAERS Safety Report 7770010-5 (Version None)
Quarter: 2011Q3

REPORT INFORMATION
  Report Type: 
  Country: None (occurrence: None)
  Receive Date: 20110922
  Receipt Date: 20100809
  Transmission Date: 20111222
  Serious: No
  Sender: FDA-Public Use
  Company Number: US-ASTRAZENECA-2008UW01170

PATIENT
  Age: 45 Year
  Sex: Female
  Weight: 99.8 kg

DRUGS (26)
  1. SEROQUEL [Suspect]
     Dosage: 100 MG 1/2 HS
     Route: 048
     Dates: start: 20030922, end: 20031013
  2. SEROQUEL [Suspect]
     Route: 048
     Dates: start: 20031021, end: 20070810
  3. SEROQUEL [Suspect]
     Indication: SCHIZOPHRENIA
     Dosage: 25-100 MG QHS
     Route: 048
     Dates: start: 20030723, end: 20030915
  4. SEROQUEL [Suspect]
     Route: 048
     Dates: start: 20031021, end: 20070810
  5. SEROQUEL [Suspect]
     Route: 048
     Dates: start: 20031021, end: 20070810
  6. SEROQUEL [Suspect]
     Dosage: 100 MG TO 200 MG
     Route: 048
     Dates: start: 20051001, end: 20070501
  7. RESTORIL [Concomitant]
     Dosage: 15-30 MG HS
     Route: 048
     Dates: start: 20060303, end: 20071005
  8. ATIVAN [Concomitant]
     Dosage: 1-2 MG
     Route: 065
     Dates: start: 20050330
  9. ABILIFY [Concomitant]
     Route: 065
     Dates: start: 20031013
  10. COGENTIN [Concomitant]
     Dosage: 1 MG BID, 1 MG QD
     Route: 048
     Dates: start: 20031231
  11. SEROQUEL [Suspect]
     Dosage: 100 MG TO 200 MG
     Route: 048
     Dates: start: 20051001, end: 20070501
  12. SEROQUEL [Suspect]
     Dosage: 100 MG 1/2 HS
     Route: 048
     Dates: start: 20030922, end: 20031013
  13. PROZAC [Concomitant]
     Dosage: 20-60 MG
     Route: 065
     Dates: start: 20030723
  14. NORTRIPTYLINE HCL [Concomitant]
     Dosage: 50-100 MG HS
     Route: 048
     Dates: start: 20040324, end: 20041203
  15. ZYPREXA [Concomitant]
     Indication: DEPRESSION
     Dates: start: 20030101
  16. SEROQUEL [Suspect]
     Indication: DEPRESSION
     Dosage: 25-100 MG QHS
     Route: 048
     Dates: start: 20030723, end: 20030915
  17. SEROQUEL [Suspect]
     Dosage: 100 MG TO 200 MG
     Route: 048
     Dates: start: 20051001, end: 20070501
  18. LITHIUM CARBONATE [Concomitant]
     Dosage: 300-600 MG
     Route: 048
     Dates: start: 20031231
  19. VALPROIC ACID [Concomitant]
     Route: 048
     Dates: start: 20040305
  20. SEROQUEL [Suspect]
     Indication: ANXIETY
     Dosage: 25-100 MG QHS
     Route: 048
     Dates: start: 20030723, end: 20030915
  21. SEROQUEL [Suspect]
     Route: 048
     Dates: start: 20031021, end: 20070810
  22. SEROQUEL [Suspect]
     Dosage: 100 MG 1/2 HS
     Route: 048
     Dates: start: 20030922, end: 20031013
  23. SEROQUEL [Suspect]
     Indication: SCHIZOAFFECTIVE DISORDER
     Dosage: 25-100 MG QHS
     Route: 048
     Dates: start: 20030723, end: 20030915
  24. SEROQUEL [Suspect]
     Dosage: 100 MG 1/2 HS
     Route: 048
     Dates: start: 20030922, end: 20031013
  25. SEROQUEL [Suspect]
     Dosage: 100 MG TO 200 MG
     Route: 048
     Dates: start: 20051001, end: 20070501
  26. HALDOL [Concomitant]
     Dosage: 1-2.5 MG
     Route: 048
     Dates: start: 20040305, end: 20050330

REACTIONS (10)
  - BLOOD CHOLESTEROL INCREASED [None]
  - MOOD SWINGS [None]
  - ADVERSE DRUG REACTION [None]
  - HYPERTENSION [None]
  - PAIN [None]
  - TYPE 2 DIABETES MELLITUS [None]
  - HYPERLIPIDAEMIA [None]
  - OBESITY [None]
  - DIABETES MELLITUS [None]
  - DIABETIC COMA [None]
